FAERS Safety Report 15452936 (Version 2)
Quarter: 2018Q4

REPORT INFORMATION
  Report Type: Report from Study
  Country: None (occurrence: GB)
  Receive Date: 20181001
  Receipt Date: 20181009
  Transmission Date: 20190204
  Serious: Yes (Hospitalization)
  Sender: FDA-Public Use
  Company Number: GB-ABBVIE-18K-167-2504560-00

PATIENT
  Sex: Female

DRUGS (1)
  1. HUMIRA [Suspect]
     Active Substance: ADALIMUMAB
     Indication: CROHN^S DISEASE
     Route: 058
     Dates: start: 20180717, end: 201809

REACTIONS (5)
  - Urinary tract infection [Unknown]
  - Nausea [Unknown]
  - Intestinal obstruction [Unknown]
  - Inflammation [Unknown]
  - Malaise [Unknown]

NARRATIVE: CASE EVENT DATE: 2018
